FAERS Safety Report 7633948-5 (Version None)
Quarter: 2011Q3

REPORT INFORMATION
  Report Type: 
  Country: None (occurrence: None)
  Receive Date: 20110725
  Receipt Date: 20110713
  Transmission Date: 20111222
  Serious: Yes (Hospitalization, Other)
  Sender: FDA-Public Use
  Company Number: US-BRISTOL-MYERS SQUIBB COMPANY-15890726

PATIENT
  Age: 56 Year
  Sex: Male

DRUGS (8)
  1. PROTONIX [Concomitant]
     Route: 048
     Dates: start: 20100701
  2. IPILIMUMAB [Suspect]
     Indication: ADENOCARCINOMA PANCREAS
     Dosage: LAST DOSE 31MAY2011
     Dates: start: 20100715, end: 20110531
  3. CREON [Concomitant]
     Dosage: 1DF= 6000 UNITS BEFORE MEALS (QAC)
     Route: 048
     Dates: start: 20090701
  4. ASCORBIC ACID [Concomitant]
     Route: 048
     Dates: start: 19950101
  5. LEVEMIR [Concomitant]
     Dosage: 1DF= 16 UNIT
     Route: 058
     Dates: start: 20090601
  6. NOVOLOG [Concomitant]
     Dosage: 1DF= 4 TO 8 UNITS
     Route: 058
     Dates: start: 20090601
  7. GLUCOSAMINE SULFATE [Concomitant]
     Route: 048
     Dates: start: 19950101
  8. ASPIRIN [Concomitant]
     Indication: CARDIOVASCULAR EVENT PROPHYLAXIS
     Route: 048
     Dates: start: 20050101

REACTIONS (3)
  - MELAENA [None]
  - HAEMORRHOIDS [None]
  - DIARRHOEA [None]
